FAERS Safety Report 13775775 (Version 1)
Quarter: 2017Q3

REPORT INFORMATION
  Report Type: Spontaneous
  Country: US (occurrence: US)
  Receive Date: 20170720
  Receipt Date: 20170720
  Transmission Date: 20171127
  Serious: No
  Sender: FDA-Public Use
  Company Number: GXBR2016US002129

PATIENT
  Sex: Female

DRUGS (3)
  1. OXYGEN. [Concomitant]
     Active Substance: OXYGEN
     Indication: PRODUCT USED FOR UNKNOWN INDICATION
     Dosage: UNK DF, UNK
     Route: 055
  2. MUPIROCIN. [Concomitant]
     Active Substance: MUPIROCIN
     Dosage: UNK DF, UNK
     Route: 061
  3. ZINC OXIDE. [Suspect]
     Active Substance: ZINC OXIDE
     Indication: POST PROCEDURAL HAEMORRHAGE
     Dosage: UNK DF, UNK
     Route: 061
     Dates: start: 201606

REACTIONS (1)
  - Haemorrhage [Not Recovered/Not Resolved]
